FAERS Safety Report 6689334-8 (Version None)
Quarter: 2010Q2

REPORT INFORMATION
  Report Type: 
  Country: None (occurrence: None)
  Receive Date: 20100416
  Receipt Date: 20100413
  Transmission Date: 20101027
  Serious: Yes (Hospitalization)
  Sender: FDA-Public Use
  Company Number: SPV1-2010-00688

PATIENT
  Age: 47 Year
  Sex: Male

DRUGS (12)
  1. FOSRENOL [Suspect]
     Indication: HYPERPHOSPHATAEMIA
     Dosage: SEE IMAGE
     Route: 048
     Dates: start: 20090602, end: 20090703
  2. FOSRENOL [Suspect]
     Indication: HYPERPHOSPHATAEMIA
     Dosage: SEE IMAGE
     Route: 048
     Dates: start: 20090914
  3. TANKARU (CALCIUM CARBONATE) [Concomitant]
  4. ALFAROL (ALFACALCIDOL) [Concomitant]
  5. ALLOPURINOL [Concomitant]
  6. LASIX [Concomitant]
  7. PRAVASTATIN [Concomitant]
  8. RABEPRAZOLE SODIUM [Concomitant]
  9. FLUITRAN (TRICHLORMETHIAZIDE) [Concomitant]
  10. ALDACTONE [Concomitant]
  11. CLONAZEPAM [Concomitant]
  12. DEPAS (ETIZOLAM) [Concomitant]

REACTIONS (1)
  - GASTROENTERITIS [None]
